FAERS Safety Report 7853435-9 (Version None)
Quarter: 2011Q3

REPORT INFORMATION
  Report Type: 
  Country: None (occurrence: None)
  Receive Date: 20110915
  Receipt Date: 20110617
  Transmission Date: 20111222
  Serious: Yes (Hospitalization)
  Sender: FDA-Public Use
  Company Number: 2011028976

PATIENT
  Age: 76 Year
  Sex: Male
  Weight: 124.7392 kg

DRUGS (26)
  1. FUROSEMIDE [Concomitant]
  2. ACETAMINOPHEN [Concomitant]
     Route: 042
  3. CALCIUM SUPPLEMENT (CALCIUM) [Concomitant]
  4. POTASSIUM CHLORIDE [Concomitant]
  5. QUETIAPINE FUMARATE [Concomitant]
  6. PRIVIGEN [Suspect]
  7. ACETYLCYSTEINE INHALATION (ACETYLCYSTEINE) [Concomitant]
  8. CEFEPIME [Concomitant]
  9. LISINOPRIL [Concomitant]
  10. INSULIN GLARGINE (INSULIN GLARGINE) [Concomitant]
  11. PRIVIGEN [Suspect]
     Indication: MYASTHENIA GRAVIS CRISIS
     Dosage: SEE IMAGE
     Route: 042
     Dates: start: 20110608, end: 20110612
  12. PRIVIGEN [Suspect]
     Indication: MYASTHENIA GRAVIS CRISIS
     Dosage: SEE IMAGE
     Route: 042
     Dates: start: 20110601, end: 20110605
  13. INSULIN ASPART (INSULIN ASPART) [Concomitant]
  14. LOVASTATIN [Concomitant]
  15. METOPROLOL TARTRATE [Concomitant]
  16. PYRIDOSTIGMINE (PYRIDOSTIGMINE) [Concomitant]
  17. VANCOMYCIN [Concomitant]
  18. FERROUS SULFATE TAB [Concomitant]
  19. PRIVIGEN [Suspect]
     Route: 042
  20. AZATHIOPRINE [Concomitant]
  21. PHOSPHATE (PHOSPHATE) [Concomitant]
  22. PRIVIGEN [Suspect]
  23. PRIVIGEN [Suspect]
  24. DIPHENHYDRAMINE HCL [Concomitant]
  25. FAMOTIDINE [Concomitant]
  26. FOLIC ACID [Concomitant]

REACTIONS (3)
  - COOMBS DIRECT TEST POSITIVE [None]
  - HAEMOGLOBIN DECREASED [None]
  - HAEMOLYSIS [None]
